FAERS Safety Report 5788948-7 (Version None)
Quarter: 2008Q2

REPORT INFORMATION
  Report Type: 
  Country: None (occurrence: None)
  Receive Date: 20080626
  Receipt Date: 20080618
  Transmission Date: 20081010
  Serious: Yes (Life-Threatening)
  Sender: FDA-Public Use
  Company Number: NL-TEVA-173273ISR

PATIENT
  Sex: Male

DRUGS (5)
  1. QUINIDINE SULFATE, TABLETS, 200 MG [Suspect]
     Indication: VENTRICULAR FIBRILLATION
  2. SIMVASTATIN [Suspect]
     Indication: HYPERCHOLESTEROLAEMIA
     Dates: start: 20080424, end: 20080508
  3. ASPIRIN [Concomitant]
     Dates: start: 20080418
  4. PROPRANOLOL HYDROCHLORIDE [Concomitant]
  5. DURATEARS [Concomitant]

REACTIONS (2)
  - POTENTIATING DRUG INTERACTION [None]
  - RHABDOMYOLYSIS [None]
